FAERS Safety Report 13870374 (Version 1)
Quarter: 2017Q3

REPORT INFORMATION
  Report Type: Not Available
  Country: US (occurrence: US)
  Receive Date: 20170815
  Receipt Date: 20170815
  Transmission Date: 20171127
  Serious: Yes (Other)
  Sender: FDA-Public Use
  Company Number: US-ANIPHARMA-2017-US-009294

PATIENT
  Age: 64 Year
  Sex: Male

DRUGS (4)
  1. TIOTROPIUM [Concomitant]
     Active Substance: TIOTROPIUM
     Route: 055
  2. SALMETEROL/FLUTICASONE [Concomitant]
     Active Substance: FLUTICASONE PROPIONATE\SALMETEROL XINAFOATE
     Route: 055
  3. PHENYTOIN SODIUM (NON-SPECIFIC) [Suspect]
     Active Substance: PHENYTOIN SODIUM
     Dosage: 300MG THRICE DAILY
     Route: 048
  4. ALBUTEROL. [Concomitant]
     Active Substance: ALBUTEROL
     Route: 055

REACTIONS (6)
  - Dystonia [Unknown]
  - Nystagmus [Recovered/Resolved]
  - Medication error [Unknown]
  - Toxicity to various agents [Unknown]
  - Depressed level of consciousness [Recovered/Resolved]
  - Agitation [Recovered/Resolved]
